FAERS Safety Report 14250813 (Version 2)
Quarter: 2018Q1

REPORT INFORMATION
  Report Type: Spontaneous
  Country: US (occurrence: US)
  Receive Date: 20171205
  Receipt Date: 20180118
  Transmission Date: 20180508
  Serious: No
  Sender: FDA-Public Use
  Company Number: US-PFIZER INC-2017520442

PATIENT
  Age: 71 Year
  Sex: Female
  Weight: 87.54 kg

DRUGS (3)
  1. ALPRAZOLAM. [Suspect]
     Active Substance: ALPRAZOLAM
     Indication: SLEEP APNOEA SYNDROME
  2. ALPRAZOLAM. [Suspect]
     Active Substance: ALPRAZOLAM
     Indication: RESTLESS LEGS SYNDROME
  3. ALPRAZOLAM. [Suspect]
     Active Substance: ALPRAZOLAM
     Indication: SLEEP DISORDER
     Dosage: 0.5 MG, AS NEEDED (ONE HALF TABLET BY MOUTH AT BEDTIME)
     Route: 048

REACTIONS (13)
  - Rhinorrhoea [Not Recovered/Not Resolved]
  - Dysphonia [Unknown]
  - Increased upper airway secretion [Not Recovered/Not Resolved]
  - Dry throat [Not Recovered/Not Resolved]
  - Salivary gland disorder [Not Recovered/Not Resolved]
  - Respiratory disorder [Unknown]
  - Bronchitis [Not Recovered/Not Resolved]
  - Allergic reaction to excipient [Unknown]
  - Laryngitis [Not Recovered/Not Resolved]
  - Dry mouth [Unknown]
  - Cough [Unknown]
  - Dysphagia [Not Recovered/Not Resolved]
  - Drug ineffective for unapproved indication [Unknown]

NARRATIVE: CASE EVENT DATE: 20171105
